FAERS Safety Report 18256180 (Version 1)
Quarter: 2020Q3

REPORT INFORMATION
  Report Type: Spontaneous
  Country: DE (occurrence: DE)
  Receive Date: 20200911
  Receipt Date: 20200911
  Transmission Date: 20201103
  Serious: Yes (Other)
  Sender: FDA-Public Use
  Company Number: DE-STRIDES ARCOLAB LIMITED-2020SP010870

PATIENT
  Age: 81 Year
  Sex: Female

DRUGS (4)
  1. LIDOCAINE. [Suspect]
     Active Substance: LIDOCAINE
     Indication: LOCAL ANAESTHESIA
     Dosage: UNK, 2% GEL
  2. ISOPTO?MAX [Suspect]
     Active Substance: DEXAMETHASONE\NEOMYCIN SULFATE\POLYMYXIN B SULFATE
     Indication: PRODUCT USED FOR UNKNOWN INDICATION
     Dosage: NEOMYCIN (3500 IU/G)/POLYMIXIN?B (6000 IU/G)/DEXAMETHASONE (1 MG/G) EYE OINTMENT, SINGLE APPLICATION
  3. MYDRUM [Suspect]
     Active Substance: TROPICAMIDE
     Indication: MYDRIASIS
     Dosage: UNK
  4. AVASTIN [Suspect]
     Active Substance: BEVACIZUMAB
     Indication: CHOROIDAL NEOVASCULARISATION
     Dosage: 1.25 MG INJECTION 0.05ML IN THE LEFT EYE.

REACTIONS (4)
  - Eyelid ptosis [Recovered/Resolved]
  - Ocular myasthenia [Recovered/Resolved]
  - Myasthenia gravis [Recovered/Resolved]
  - Diplopia [Recovered/Resolved]
